FAERS Safety Report 11671413 (Version 1)
Quarter: 2015Q4

REPORT INFORMATION
  Report Type: Report from Study
  Country: US (occurrence: US)
  Receive Date: 20151028
  Receipt Date: 20151028
  Transmission Date: 20160304
  Serious: No
  Sender: FDA-Public Use
  Company Number: US-AMGEN-USASL2015110969

PATIENT
  Age: 44 Year
  Sex: Female

DRUGS (1)
  1. ENBREL [Suspect]
     Active Substance: ETANERCEPT
     Indication: RHEUMATOID ARTHRITIS
     Dosage: UNK
     Route: 065
     Dates: start: 20150401

REACTIONS (8)
  - Malaise [Unknown]
  - Rhinorrhoea [Unknown]
  - Pyrexia [Unknown]
  - Adverse event [Unknown]
  - Upper respiratory tract infection [Unknown]
  - Cough [Unknown]
  - Wheezing [Unknown]
  - Oropharyngeal pain [Unknown]

NARRATIVE: CASE EVENT DATE: 201508
